FAERS Safety Report 24220311 (Version 4)
Quarter: 2025Q4

REPORT INFORMATION
  Report Type: Spontaneous
  Country: US (occurrence: US)
  Receive Date: 20240817
  Receipt Date: 20251028
  Transmission Date: 20260117
  Serious: No
  Sender: TRAVERE THERAPEUTICS
  Company Number: US-TRAVERE-2024TVT00636

PATIENT
  Sex: Male

DRUGS (4)
  1. FILSPARI [Suspect]
     Active Substance: SPARSENTAN
     Indication: IgA nephropathy
     Dosage: TAKEN IN MORNING
     Route: 048
  2. TARPEYO [Concomitant]
     Active Substance: BUDESONIDE
  3. OMEPRAZOLE [Concomitant]
     Active Substance: OMEPRAZOLE
  4. SEROQUEL [Concomitant]
     Active Substance: QUETIAPINE FUMARATE

REACTIONS (7)
  - Glomerular filtration rate decreased [Unknown]
  - Blood uric acid increased [Unknown]
  - Respiratory tract infection [Unknown]
  - Protein total increased [Unknown]
  - Proteinuria [None]
  - Epstein-Barr virus infection [Unknown]
  - Gastric ulcer [Unknown]
